FAERS Safety Report 8160092-3 (Version None)
Quarter: 2012Q1

REPORT INFORMATION
  Report Type: 
  Country: None (occurrence: None)
  Receive Date: 20120223
  Receipt Date: 20120221
  Transmission Date: 20120608
  Serious: Yes (Death, Congenital Anomaly, Other)
  Sender: FDA-Public Use
  Company Number: US-PFIZER INC-2012011087

PATIENT
  Sex: Male
  Weight: 31.746 kg

DRUGS (3)
  1. CYMBALTA [Concomitant]
     Route: 064
  2. SEROQUEL [Concomitant]
     Dosage: UNK
     Route: 064
  3. ZOLOFT [Suspect]
     Indication: DEPRESSION
     Dosage: 100 MG, 3X/DAY
     Route: 064
     Dates: start: 19990101, end: 20021201

REACTIONS (8)
  - ACTIVITIES OF DAILY LIVING IMPAIRED [None]
  - SEPSIS [None]
  - CLEFT PALATE [None]
  - FEEDING DISORDER [None]
  - NOSE DEFORMITY [None]
  - GAIT DISTURBANCE [None]
  - MATERNAL EXPOSURE TIMING UNSPECIFIED [None]
  - SKULL MALFORMATION [None]
